FAERS Safety Report 9004841 (Version 1)
Quarter: 2013Q1

REPORT INFORMATION
  Report Type: Spontaneous
  Country: US (occurrence: None)
  Receive Date: 20130107
  Receipt Date: 20130107
  Transmission Date: 20140127
  Serious: Yes (Other)
  Sender: FDA-Public Use
  Company Number: None

PATIENT
  Age: 63 Year
  Sex: Male
  Weight: 88.45 kg

DRUGS (4)
  1. FLOMAX TAMSULOSIN [Suspect]
     Indication: PROSTATOMEGALY
     Dosage: 1 CAPSULE 1/DAY
     Dates: start: 20130102, end: 20130102
  2. METATOPROL [Concomitant]
  3. B12 INJECTION [Concomitant]
  4. SAW PALMETTO [Concomitant]

REACTIONS (6)
  - Dizziness [None]
  - Headache [None]
  - Nasal congestion [None]
  - Sluggishness [None]
  - Dizziness [None]
  - Nausea [None]
